FAERS Safety Report 20302453 (Version 3)
Quarter: 2022Q1

REPORT INFORMATION
  Report Type: Report from Study
  Country: CA (occurrence: CA)
  Receive Date: 20220106
  Receipt Date: 20220110
  Transmission Date: 20220424
  Serious: Yes (Life-Threatening)
  Sender: FDA-Public Use
  Company Number: CA-BIOGEN-2021BI01078872

PATIENT
  Age: 81 Year
  Sex: Female

DRUGS (1)
  1. DALFAMPRIDINE [Suspect]
     Active Substance: DALFAMPRIDINE
     Indication: Multiple sclerosis
     Route: 048
     Dates: start: 20211211, end: 20220101

REACTIONS (9)
  - Pneumonia [Not Recovered/Not Resolved]
  - Urinary retention [Not Recovered/Not Resolved]
  - Neck pain [Unknown]
  - Pathogen resistance [Unknown]
  - Dizziness [Unknown]
  - Headache [Unknown]
  - Back pain [Unknown]
  - Cystitis [Not Recovered/Not Resolved]
  - Constipation [Not Recovered/Not Resolved]

NARRATIVE: CASE EVENT DATE: 20211211
